FAERS Safety Report 8277836-2 (Version None)
Quarter: 2012Q2

REPORT INFORMATION
  Report Type: 
  Country: None (occurrence: None)
  Receive Date: 20120412
  Receipt Date: 20120411
  Transmission Date: 20120825
  Serious: Yes (Hospitalization)
  Sender: FDA-Public Use
  Company Number: US-GILEAD-2012-0053254

PATIENT
  Sex: Male

DRUGS (5)
  1. LETAIRIS [Suspect]
     Indication: COLLAGEN-VASCULAR DISEASE
  2. LETAIRIS [Suspect]
     Indication: CREST SYNDROME
  3. LETAIRIS [Suspect]
     Indication: PULMONARY HYPERTENSION
     Dosage: 10 MG, UNK
     Route: 048
     Dates: start: 20100305
  4. LETAIRIS [Suspect]
     Indication: POLYMYOSITIS
  5. LETAIRIS [Suspect]
     Indication: ANTISYNTHETASE SYNDROME

REACTIONS (3)
  - VOMITING [None]
  - BACTERIAL INFECTION [None]
  - PYREXIA [None]
